FAERS Safety Report 19134387 (Version 1)
Quarter: 2021Q2

REPORT INFORMATION
  Report Type: Spontaneous
  Country: US (occurrence: US)
  Receive Date: 20210414
  Receipt Date: 20210414
  Transmission Date: 20210717
  Serious: No
  Sender: FDA-Public Use
  Company Number: US-BION-008926

PATIENT
  Age: 68 Year
  Sex: Female

DRUGS (2)
  1. ROBAXIN [Concomitant]
     Active Substance: METHOCARBAMOL
     Dosage: STRENGTH: 750 MG
  2. ALEVE [Suspect]
     Active Substance: NAPROXEN SODIUM
     Indication: PAIN
     Route: 048

REACTIONS (2)
  - Expired product administered [Not Recovered/Not Resolved]
  - Product physical issue [Unknown]
